FAERS Safety Report 4391125-8 (Version None)
Quarter: 2004Q2

REPORT INFORMATION
  Report Type: 
  Country: None (occurrence: None)
  Receive Date: 20040621
  Receipt Date: 20040219
  Transmission Date: 20050107
  Serious: Yes (Other)
  Sender: FDA-Public Use
  Company Number: USA-2003-0009607

PATIENT
  Age: 47 Year
  Sex: Male
  Weight: 88.9 kg

DRUGS (7)
  1. OXYCONTIN [Suspect]
     Dosage: 40 MG, BID, ORAL
     Route: 048
  2. KEFLEX [Concomitant]
  3. VALIUM [Concomitant]
  4. MOTRIN [Concomitant]
  5. NEXIUM [Concomitant]
  6. AMBIEN [Concomitant]
  7. LEXAPRO [Concomitant]

REACTIONS (16)
  - ABNORMAL BEHAVIOUR [None]
  - ANXIETY [None]
  - ASTHENIA [None]
  - BACK PAIN [None]
  - DEPRESSION [None]
  - DIARRHOEA [None]
  - DRUG ABUSER [None]
  - DRUG DEPENDENCE [None]
  - DRUG WITHDRAWAL SYNDROME [None]
  - EPICONDYLITIS [None]
  - HYPERHIDROSIS [None]
  - INSOMNIA [None]
  - MUSCULOSKELETAL STIFFNESS [None]
  - NERVOUSNESS [None]
  - PAIN [None]
  - PAIN IN EXTREMITY [None]
